FAERS Safety Report 18261068 (Version 5)
Quarter: 2020Q4

REPORT INFORMATION
  Report Type: Report from Study
  Country: None (occurrence: US)
  Receive Date: 20200914
  Receipt Date: 20201207
  Transmission Date: 20210113
  Serious: Yes (Hospitalization, Other)
  Sender: FDA-Public Use
  Company Number: US-ABBVIE-20K-163-3561367-00

PATIENT
  Sex: Male

DRUGS (5)
  1. PLAVIX [Concomitant]
     Active Substance: CLOPIDOGREL BISULFATE
     Indication: PRODUCT USED FOR UNKNOWN INDICATION
  2. GAZYVA [Concomitant]
     Active Substance: OBINUTUZUMAB
     Indication: CHRONIC LYMPHOCYTIC LEUKAEMIA
  3. IMDUR [Concomitant]
     Active Substance: ISOSORBIDE MONONITRATE
     Indication: PRODUCT USED FOR UNKNOWN INDICATION
  4. ALTACE [Concomitant]
     Active Substance: RAMIPRIL
     Indication: PRODUCT USED FOR UNKNOWN INDICATION
  5. VENCLEXTA [Suspect]
     Active Substance: VENETOCLAX
     Indication: CHRONIC LYMPHOCYTIC LEUKAEMIA
     Route: 048
     Dates: start: 20200401, end: 20200907

REACTIONS (20)
  - Dialysis device insertion [Unknown]
  - Weight increased [Recovering/Resolving]
  - Vascular pseudoaneurysm [Unknown]
  - Febrile neutropenia [Unknown]
  - Nasopharyngitis [Unknown]
  - Mental status changes [Unknown]
  - Sepsis [Unknown]
  - Pneumonia [Unknown]
  - Diarrhoea [Unknown]
  - Neutropenia [Unknown]
  - Acute kidney injury [Unknown]
  - Diabetes mellitus [Unknown]
  - Traumatic haemorrhage [Unknown]
  - Atrial fibrillation [Unknown]
  - Illness [Unknown]
  - Hypotension [Unknown]
  - Haemoglobin decreased [Unknown]
  - Complication associated with device [Unknown]
  - Intentional medical device removal by patient [Unknown]
  - Weight decreased [Unknown]

NARRATIVE: CASE EVENT DATE: 2020
